FAERS Safety Report 5643530-7 (Version None)
Quarter: 2008Q1

REPORT INFORMATION
  Report Type: 
  Country: None (occurrence: None)
  Receive Date: 20080228
  Receipt Date: 20080225
  Transmission Date: 20080703
  Serious: Yes (Other)
  Sender: FDA-Public Use
  Company Number: JP-BOEHRINGER INGELHEIM GMBH, GERMANY-2008-BP-02737RO

PATIENT
  Age: 1 Year
  Sex: Female

DRUGS (4)
  1. METHOTREXATE [Suspect]
     Indication: ACUTE LYMPHOCYTIC LEUKAEMIA
  2. METHOTREXATE [Suspect]
     Indication: PROPHYLAXIS
     Route: 037
  3. LEUCOVORIN CALCIUM [Concomitant]
  4. MERCAPTOPURINE [Concomitant]
     Indication: CHEMOTHERAPY
     Route: 048

REACTIONS (5)
  - BLOOD CREATININE INCREASED [None]
  - BONE MARROW FAILURE [None]
  - CREATININE RENAL CLEARANCE DECREASED [None]
  - MUCOSAL INFLAMMATION [None]
  - RENAL FAILURE ACUTE [None]
